FAERS Safety Report 8556859-X (Version None)
Quarter: 2012Q3

REPORT INFORMATION
  Report Type: 
  Country: None (occurrence: None)
  Receive Date: 20120801
  Receipt Date: 20120723
  Transmission Date: 20120928
  Serious: Yes (Other)
  Sender: FDA-Public Use
  Company Number: US-009507513-1207USA011221

PATIENT

DRUGS (5)
  1. GABAPENTIN [Suspect]
     Dosage: UNK DF, UNK
  2. AMPYRA [Suspect]
     Dosage: 10 MG, UNK
  3. BUPROPION HYDROCHLORIDE [Suspect]
     Dosage: UNK DF, UNK
  4. DIAZEPAM [Suspect]
     Dosage: UNK DF, UNK
  5. ZOCOR [Suspect]
     Dosage: UNK DF, UNK
     Route: 048

REACTIONS (7)
  - MUSCLE DISORDER [None]
  - URINARY INCONTINENCE [None]
  - SUICIDAL IDEATION [None]
  - MALAISE [None]
  - CONVULSION [None]
  - EYE MOVEMENT DISORDER [None]
  - FEELING ABNORMAL [None]
